FAERS Safety Report 24348409 (Version 1)
Quarter: 2024Q3

REPORT INFORMATION
  Report Type: Spontaneous
  Country: US (occurrence: US)
  Receive Date: 20240923
  Receipt Date: 20240923
  Transmission Date: 20241017
  Serious: Yes (Other)
  Sender: SPECGX
  Company Number: US-SPECGX-T202401888

PATIENT
  Age: 15 Year
  Sex: Male

DRUGS (2)
  1. POSACONAZOLE [Suspect]
     Active Substance: POSACONAZOLE
     Indication: Antifungal treatment
     Dosage: 300 MILLIGRAM, QD
  2. CASPOFUNGIN [Concomitant]
     Active Substance: CASPOFUNGIN
     Indication: Antifungal treatment
     Dosage: 50 MILLIGRAM, QD
     Route: 042

REACTIONS (3)
  - Device occlusion [Unknown]
  - Wrong technique in product usage process [Unknown]
  - Product use in unapproved indication [Unknown]
